FAERS Safety Report 18739184 (Version 1)
Quarter: 2021Q1

REPORT INFORMATION
  Report Type: Spontaneous
  Country: US (occurrence: US)
  Receive Date: 20210114
  Receipt Date: 20210114
  Transmission Date: 20210419
  Serious: No
  Sender: FDA-Public Use
  Company Number: US-ALLERGAN-2049416US

PATIENT
  Age: 42 Year
  Sex: Female

DRUGS (1)
  1. UBRELVY [Suspect]
     Active Substance: UBROGEPANT
     Indication: MIGRAINE WITH AURA
     Dosage: 1 TB AT ONSET OF THE PAIN, MAY REPEAT IN 2 HRS IF NEEDED; MAX 2 TB A DAY AND/OR 2 TB A WEEK
     Route: 048
     Dates: start: 202010

REACTIONS (1)
  - Migraine [Not Recovered/Not Resolved]
